FAERS Safety Report 11863025 (Version 1)
Quarter: 2015Q4

REPORT INFORMATION
  Report Type: Spontaneous
  Country: US (occurrence: None)
  Receive Date: 20151222
  Receipt Date: 20151222
  Transmission Date: 20160305
  Serious: Yes (Congenital Anomaly, Other)
  Sender: FDA-Public Use
  Company Number: None

PATIENT
  Age: 39 Year
  Sex: Female

DRUGS (17)
  1. HUMIRA [Suspect]
     Active Substance: ADALIMUMAB
     Indication: PSORIATIC ARTHROPATHY
  2. PERCOCET [Concomitant]
     Active Substance: ACETAMINOPHEN\OXYCODONE HYDROCHLORIDE
  3. ZOFRAN [Concomitant]
     Active Substance: ONDANSETRON HYDROCHLORIDE
  4. SOMA [Concomitant]
     Active Substance: CARISOPRODOL
  5. FLEXERIL [Concomitant]
     Active Substance: CYCLOBENZAPRINE HYDROCHLORIDE
  6. MAXALT [Concomitant]
     Active Substance: RIZATRIPTAN BENZOATE
  7. PHENERGAN [Concomitant]
     Active Substance: PROMETHAZINE HYDROCHLORIDE
  8. INSULIN [Concomitant]
     Active Substance: INSULIN NOS
  9. BENADRYL [Concomitant]
     Active Substance: DIPHENHYDRAMINE HYDROCHLORIDE
  10. LANTUS [Concomitant]
     Active Substance: INSULIN GLARGINE
  11. GLYBURIZIDE/METFORMIN [Concomitant]
  12. LYRICA [Concomitant]
     Active Substance: PREGABALIN
  13. CLONAZPAM [Concomitant]
  14. VISTARIL [Concomitant]
     Active Substance: HYDROXYZINE PAMOATE
  15. IMODIUM [Concomitant]
     Active Substance: LOPERAMIDE HYDROCHLORIDE
  16. STELARA [Concomitant]
     Active Substance: USTEKINUMAB
  17. HUMIRA [Concomitant]
     Active Substance: ADALIMUMAB

REACTIONS (8)
  - Maternal drugs affecting foetus [None]
  - Blindness congenital [None]
  - Cataract congenital [None]
  - Developmental delay [None]
  - Bronchiolitis [None]
  - Immature respiratory system [None]
  - Maternal exposure during pregnancy [None]
  - Pulmonary oedema [None]

NARRATIVE: CASE EVENT DATE: 20140918
